FAERS Safety Report 19571303 (Version 3)
Quarter: 2021Q3

REPORT INFORMATION
  Report Type: Spontaneous
  Country: IT (occurrence: IT)
  Receive Date: 20210715
  Receipt Date: 20210728
  Transmission Date: 20211014
  Serious: Yes (Death, Other)
  Sender: FDA-Public Use
  Company Number: IT-ORGANON-O2107ITA001196

PATIENT
  Age: 18 Year
  Sex: Male

DRUGS (5)
  1. PAROXETINE. [Concomitant]
     Active Substance: PAROXETINE
     Indication: ANXIETY
     Dosage: UNK
  2. MIRTAZAPINE. [Suspect]
     Active Substance: MIRTAZAPINE
     Dosage: 30 MILLIGRAM
  3. METHADONE [Interacting]
     Active Substance: METHADONE HYDROCHLORIDE
     Dosage: HALF OF A VIAL
  4. FLURAZEPAM [Interacting]
     Active Substance: FLURAZEPAM HYDROCHLORIDE
     Dosage: UNK
  5. CARBAMAZEPINE. [Concomitant]
     Active Substance: CARBAMAZEPINE
     Indication: ANGER
     Dosage: UNK

REACTIONS (7)
  - Respiratory depression [Unknown]
  - Somnolence [Unknown]
  - Drug interaction [Fatal]
  - Unresponsive to stimuli [Unknown]
  - Dysarthria [Unknown]
  - Loss of consciousness [Unknown]
  - Toxicity to various agents [Fatal]
